FAERS Safety Report 6149030-2 (Version None)
Quarter: 2009Q2

REPORT INFORMATION
  Report Type: 
  Country: None (occurrence: None)
  Receive Date: 20090409
  Receipt Date: 20090402
  Transmission Date: 20091009
  Serious: Yes (Other)
  Sender: FDA-Public Use
  Company Number: US-ELI_LILLY_AND_COMPANY-US200904000865

PATIENT
  Sex: Female

DRUGS (6)
  1. BYETTA [Suspect]
     Dosage: 10 UG, UNKNOWN
     Route: 065
     Dates: end: 20090129
  2. GLIPIZIDE [Concomitant]
     Dosage: UNK, UNKNOWN
     Route: 065
  3. METFORMIN HCL [Concomitant]
     Dosage: 1000 MG, 2/D
     Route: 048
  4. AVALIDE [Concomitant]
     Dosage: UNK, DAILY (1/D)
     Route: 065
  5. ALBUTEROL [Concomitant]
     Dosage: UNK, UNKNOWN
     Route: 065
  6. FISH OIL [Concomitant]
     Dosage: UNK, UNKNOWN
     Route: 065

REACTIONS (1)
  - PANCREATITIS ACUTE [None]
